FAERS Safety Report 12842768 (Version 1)
Quarter: 2016Q4

REPORT INFORMATION
  Report Type: Spontaneous
  Country: US (occurrence: US)
  Receive Date: 20161013
  Receipt Date: 20161013
  Transmission Date: 20170207
  Serious: No
  Sender: FDA-Public Use
  Company Number: US-PFIZER INC-2016474461

PATIENT
  Age: 61 Year
  Sex: Female
  Weight: 58.97 kg

DRUGS (1)
  1. ADVIL PM [Suspect]
     Active Substance: DIPHENHYDRAMINE CITRATE\IBUPROFEN
     Indication: SLEEP DISORDER
     Dosage: 200 MG, DAILY (ONE LIQUIGEL JUST AT NIGHT)
     Route: 048
     Dates: start: 201605, end: 201610

REACTIONS (5)
  - Drug ineffective for unapproved indication [Unknown]
  - Product difficult to swallow [Unknown]
  - Poor quality drug administered [Unknown]
  - Product physical issue [Unknown]
  - Dysphagia [Unknown]

NARRATIVE: CASE EVENT DATE: 201605
